FAERS Safety Report 18242507 (Version 2)
Quarter: 2020Q4

REPORT INFORMATION
  Report Type: Spontaneous
  Country: US (occurrence: US)
  Receive Date: 20200908
  Receipt Date: 20201006
  Transmission Date: 20210113
  Serious: Yes (Other)
  Sender: FDA-Public Use
  Company Number: US-ASTRAZENECA-2020SF10111

PATIENT
  Age: 19485 Day
  Sex: Female
  Weight: 66 kg

DRUGS (11)
  1. NEURONTIN [Concomitant]
     Active Substance: GABAPENTIN
  2. LEVOCETIRIZINE [Concomitant]
     Active Substance: LEVOCETIRIZINE
     Route: 048
  3. EPINEPHRINE. [Concomitant]
     Active Substance: EPINEPHRINE
     Dosage: 0.3MG UNKNOWN
  4. FASENRA [Suspect]
     Active Substance: BENRALIZUMAB
     Indication: ASTHMA
     Dosage: 30.0MG UNKNOWN
     Route: 058
     Dates: start: 20200824, end: 20200824
  5. BENADRYL [Concomitant]
     Active Substance: DIPHENHYDRAMINE HYDROCHLORIDE
  6. TYLENOL [Concomitant]
     Active Substance: ACETAMINOPHEN
     Dosage: 500 X 2
     Route: 048
  7. XOPNEX [Concomitant]
     Dosage: 1.25MG UNKNOWN
  8. PROZAC [Concomitant]
     Active Substance: FLUOXETINE HYDROCHLORIDE
     Route: 048
  9. LEVALBUTEROL. [Concomitant]
     Active Substance: LEVALBUTEROL
  10. SINGULAIR [Concomitant]
     Active Substance: MONTELUKAST SODIUM
  11. BREO ELLIPTA [Concomitant]
     Active Substance: FLUTICASONE FUROATE\VILANTEROL TRIFENATATE

REACTIONS (7)
  - Lip swelling [Unknown]
  - Headache [Unknown]
  - Throat irritation [Unknown]
  - Chest discomfort [Unknown]
  - Paraesthesia oral [Unknown]
  - Eye pain [Unknown]
  - Asthenopia [Unknown]

NARRATIVE: CASE EVENT DATE: 20200824
